FAERS Safety Report 15283310 (Version 1)
Quarter: 2018Q3

REPORT INFORMATION
  Report Type: Spontaneous
  Country: GB (occurrence: GB)
  Receive Date: 20180816
  Receipt Date: 20180816
  Transmission Date: 20181010
  Serious: Yes (Other)
  Sender: FDA-Public Use
  Company Number: GB-AUROBINDO-08-AUR-05140

PATIENT
  Age: 53 Year
  Sex: Male

DRUGS (7)
  1. ESCITALOPRAM [Concomitant]
     Active Substance: ESCITALOPRAM OXALATE
     Indication: PRODUCT USED FOR UNKNOWN INDICATION
     Dosage: UNK
     Route: 065
  2. MIRTAZAPINE FILM?COATED TABLETS 15 MG [Suspect]
     Active Substance: MIRTAZAPINE
     Dosage: 15 MG,TWO TIMES A DAY,,15 MG TWICE A DAY
     Route: 065
     Dates: start: 20070209
  3. MIRTAZAPINE FILM?COATED TABLETS 15 MG [Suspect]
     Active Substance: MIRTAZAPINE
     Dosage: UNK UNK,UNK,
     Route: 065
     Dates: start: 20070214, end: 20070529
  4. DOSULEPIN HYDROCHLORIDE [Concomitant]
     Active Substance: DOTHIEPIN HYDROCHLORIDE
     Indication: PRODUCT USED FOR UNKNOWN INDICATION
     Dosage: 75 MILLIGRAM
     Route: 065
     Dates: start: 20070606
  5. MIRTAZAPINE FILM?COATED TABLETS 15 MG [Suspect]
     Active Substance: MIRTAZAPINE
     Indication: PRODUCT USED FOR UNKNOWN INDICATION
     Dosage: 15 MG,ONCE A DAY,
     Route: 065
     Dates: start: 20070201, end: 20070207
  6. MIRTAZAPINE FILM?COATED TABLETS 15 MG [Suspect]
     Active Substance: MIRTAZAPINE
     Dosage: UNK UNK,UNK,
     Route: 065
     Dates: start: 20070529, end: 20070608
  7. MIRTAZAPINE FILM?COATED TABLETS 15 MG [Suspect]
     Active Substance: MIRTAZAPINE
     Dosage: 30 MG,ONCE A DAY,,30 MG ONCE DAY
     Route: 065
     Dates: start: 20070213, end: 20070214

REACTIONS (8)
  - Peripheral swelling [Unknown]
  - Depression [Unknown]
  - Joint swelling [Unknown]
  - Alcohol interaction [Unknown]
  - Aggression [Unknown]
  - Nightmare [Unknown]
  - Homicide [Unknown]
  - Abnormal dreams [Unknown]

NARRATIVE: CASE EVENT DATE: 20070209
